FAERS Safety Report 11648301 (Version 2)
Quarter: 2016Q1

REPORT INFORMATION
  Report Type: Spontaneous
  Country: FR (occurrence: FR)
  Receive Date: 20151021
  Receipt Date: 20160118
  Transmission Date: 20160525
  Serious: Yes (Other)
  Sender: FDA-Public Use
  Company Number: FR-JNJFOC-20151014377

PATIENT

DRUGS (2)
  1. XEPLION [Suspect]
     Active Substance: PALIPERIDONE PALMITATE
     Indication: CHILDHOOD PSYCHOSIS
     Route: 030
  2. XEPLION [Suspect]
     Active Substance: PALIPERIDONE PALMITATE
     Indication: CHILDHOOD PSYCHOSIS
     Route: 030
     Dates: start: 2015

REACTIONS (6)
  - Off label use [Unknown]
  - Product use issue [Unknown]
  - Hallucination [Unknown]
  - Mania [Unknown]
  - Psychiatric decompensation [Unknown]
  - Treatment noncompliance [Unknown]

NARRATIVE: CASE EVENT DATE: 201506
